FAERS Safety Report 10870719 (Version 1)
Quarter: 2015Q1

REPORT INFORMATION
  Report Type: Spontaneous
  Country: US (occurrence: US)
  Receive Date: 20150226
  Receipt Date: 20150226
  Transmission Date: 20150721
  Serious: Yes (Death, Other)
  Sender: FDA-Public Use
  Company Number: US-CELGENE-163-50794-12032418

PATIENT

DRUGS (4)
  1. REVLIMID [Suspect]
     Active Substance: LENALIDOMIDE
     Indication: ACUTE MYELOID LEUKAEMIA
  2. VIDAZA [Suspect]
     Active Substance: AZACITIDINE
     Indication: ACUTE MYELOID LEUKAEMIA
  3. REVLIMID [Suspect]
     Active Substance: LENALIDOMIDE
     Indication: MYELODYSPLASTIC SYNDROME
     Dosage: 10MG,15 MG, 20MG, 25MG, 50MG, 75MG
     Route: 048
  4. VIDAZA [Suspect]
     Active Substance: AZACITIDINE
     Indication: MYELODYSPLASTIC SYNDROME
     Route: 041

REACTIONS (27)
  - Hypotension [Unknown]
  - Nausea [Unknown]
  - Coronary artery disease [Unknown]
  - Fluid retention [Unknown]
  - Sepsis [Unknown]
  - Febrile neutropenia [Unknown]
  - Dyspnoea [Unknown]
  - Bacteraemia [Unknown]
  - Pyrexia [Unknown]
  - Confusional state [Unknown]
  - Myalgia [Unknown]
  - Syncope [Unknown]
  - Pruritus [Unknown]
  - Death [Fatal]
  - Constipation [Unknown]
  - Rash [Unknown]
  - Decreased appetite [Unknown]
  - Pneumonia [Unknown]
  - Infection [Unknown]
  - Cellulitis [Unknown]
  - Pneumonia fungal [Unknown]
  - Urinary tract infection [Unknown]
  - Haemorrhage [Unknown]
  - Bone pain [Unknown]
  - Diarrhoea [Unknown]
  - Weight decreased [Unknown]
  - Fatigue [Unknown]
